FAERS Safety Report 25251670 (Version 2)
Quarter: 2025Q3

REPORT INFORMATION
  Report Type: Spontaneous
  Country: JP (occurrence: JP)
  Receive Date: 20250429
  Receipt Date: 20250725
  Transmission Date: 20251021
  Serious: Yes (Life-Threatening, Other)
  Sender: BRISTOL-MYERS SQUIBB COMPANY
  Company Number: JP-ONO-2025JP007395

PATIENT

DRUGS (1)
  1. OPDIVO [Suspect]
     Active Substance: NIVOLUMAB
     Indication: Gastric cancer
     Route: 041

REACTIONS (1)
  - Respiratory failure [Recovering/Resolving]
